FAERS Safety Report 18035177 (Version 1)
Quarter: 2020Q3

REPORT INFORMATION
  Report Type: Spontaneous
  Country: US (occurrence: US)
  Receive Date: 20200715
  Receipt Date: 20200715
  Transmission Date: 20201103
  Serious: No
  Sender: FDA-Public Use
  Company Number: None

PATIENT

DRUGS (1)
  1. ASPIRIN 81MG ENTERIC COATED [Suspect]
     Active Substance: ASPIRIN

REACTIONS (3)
  - Product dispensing error [None]
  - Incorrect route of product administration [None]
  - Wrong technique in product usage process [None]
